FAERS Safety Report 25604509 (Version 5)
Quarter: 2025Q4

REPORT INFORMATION
  Report Type: Report from Study
  Country: CA (occurrence: CA)
  Receive Date: 20250725
  Receipt Date: 20251031
  Transmission Date: 20260118
  Serious: Yes (Other)
  Sender: TAKEDA
  Company Number: CA-TAKEDA-2025TUS066015

PATIENT
  Age: 63 Year
  Sex: Female

DRUGS (6)
  1. VEDOLIZUMAB [Suspect]
     Active Substance: VEDOLIZUMAB
     Indication: Colitis ulcerative
     Dosage: 300 MILLIGRAM
  2. VEDOLIZUMAB [Suspect]
     Active Substance: VEDOLIZUMAB
     Dosage: 300 MILLIGRAM, Q4WEEKS
     Dates: start: 20250918
  3. VEDOLIZUMAB [Suspect]
     Active Substance: VEDOLIZUMAB
     Dosage: 300 MILLIGRAM, Q4WEEKS
  4. Cortiment [Concomitant]
     Dosage: UNK
  5. URSODIOL [Concomitant]
     Active Substance: URSODIOL
     Dosage: UNK
  6. ALPHA LIPOIC ACID [Concomitant]
     Active Substance: .ALPHA.-LIPOIC ACID
     Dosage: UNK

REACTIONS (7)
  - Hepatic fibrosis [Unknown]
  - Frequent bowel movements [Unknown]
  - Diarrhoea [Unknown]
  - Haemoglobin decreased [Unknown]
  - Drug effect less than expected [Unknown]
  - Off label use [Unknown]
  - Drug level decreased [Unknown]

NARRATIVE: CASE EVENT DATE: 20250918
